FAERS Safety Report 6878108-0 (Version None)
Quarter: 2010Q2

REPORT INFORMATION
  Report Type: 
  Country: None (occurrence: None)
  Receive Date: 20100616
  Receipt Date: 20100316
  Transmission Date: 20101027
  Serious: No
  Sender: FDA-Public Use
  Company Number: DSA_42549_2010

PATIENT
  Sex: Female

DRUGS (17)
  1. XENAZINE [Suspect]
     Indication: TARDIVE DYSKINESIA
     Dosage: 12.5 MG TID ORAL
     Route: 048
     Dates: start: 20100128
  2. THEOPHYLLINE [Concomitant]
  3. ZYRTEC-D 12 HOUR [Concomitant]
  4. ACCOLATE [Concomitant]
  5. DIGOXIN [Concomitant]
  6. SERTRALINE HYDROCHLORIDE [Concomitant]
  7. ARICEPT [Concomitant]
  8. POTASSIUM [Concomitant]
  9. VERAPAMIL [Concomitant]
  10. FUROSEMIDE [Concomitant]
  11. DETROL LA [Concomitant]
  12. ARTANE [Concomitant]
  13. MIRALAX [Concomitant]
  14. PREDNISONE [Concomitant]
  15. VITAMIN TAB [Concomitant]
  16. ALBUTEROL [Concomitant]
  17. NEBULIZER [Concomitant]

REACTIONS (4)
  - CERUMEN IMPACTION [None]
  - DRUG INEFFECTIVE FOR UNAPPROVED INDICATION [None]
  - EAR PAIN [None]
  - HERPES ZOSTER [None]
